FAERS Safety Report 8609272 (Version 2)
Quarter: 2013Q2

REPORT INFORMATION
  Report Type: Spontaneous
  Country: IN (occurrence: IN)
  Receive Date: 20120611
  Receipt Date: 20130411
  Transmission Date: 20140414
  Serious: Yes (Other)
  Sender: FDA-Public Use
  Company Number: PHHY2012IN048518

PATIENT
  Age: 28 Year
  Sex: Male

DRUGS (4)
  1. ISONIAZID [Suspect]
     Indication: PULMONARY TUBERCULOSIS
  2. RIFAMPICIN [Suspect]
     Indication: PULMONARY TUBERCULOSIS
  3. ETHAMBUTOL [Suspect]
     Indication: PULMONARY TUBERCULOSIS
  4. PYRAZINAMIDE [Suspect]
     Indication: PULMONARY TUBERCULOSIS

REACTIONS (14)
  - Sarcoidosis [Recovering/Resolving]
  - Rash generalised [Recovering/Resolving]
  - Rash maculo-papular [Recovering/Resolving]
  - Rash erythematous [Recovering/Resolving]
  - Skin lesion [Recovering/Resolving]
  - Skin plaque [Recovering/Resolving]
  - Exfoliative rash [Recovering/Resolving]
  - Skin hyperpigmentation [Recovering/Resolving]
  - Skin mass [Recovering/Resolving]
  - Splenomegaly [Recovering/Resolving]
  - Granuloma skin [Recovering/Resolving]
  - Uveitis [Recovering/Resolving]
  - Eye pain [Recovering/Resolving]
  - Ocular hyperaemia [Recovering/Resolving]
